FAERS Safety Report 21670957 (Version 1)
Quarter: 2022Q4

REPORT INFORMATION
  Report Type: Report from Study
  Country: US (occurrence: US)
  Receive Date: 20221202
  Receipt Date: 20221202
  Transmission Date: 20230112
  Serious: No
  Sender: FDA-Public Use
  Company Number: US-ABBVIE-4219965

PATIENT
  Sex: Male

DRUGS (1)
  1. VENCLEXTA [Suspect]
     Active Substance: VENETOCLAX
     Indication: Acute myeloid leukaemia
     Dosage: FORM STRENGTH:100 MG, TAKE 4 TABLETS BY MOUTH ONCE DAILY WITH FOOD AND A FULL GLASS OF WATER
     Route: 048
     Dates: end: 20221128

REACTIONS (1)
  - Adverse drug reaction [Not Recovered/Not Resolved]
